FAERS Safety Report 7550050-1 (Version None)
Quarter: 2011Q2

REPORT INFORMATION
  Report Type: 
  Country: None (occurrence: None)
  Receive Date: 20110615
  Receipt Date: 20110610
  Transmission Date: 20111010
  Serious: Yes (Disabling, Other)
  Sender: FDA-Public Use
  Company Number: US-CEPHALON-2011002969

PATIENT
  Sex: Female
  Weight: 53 kg

DRUGS (2)
  1. TREANDA [Suspect]
     Indication: NON-HODGKIN'S LYMPHOMA
     Route: 042
     Dates: start: 20110105, end: 20110405
  2. TREANDA [Suspect]
     Route: 042
     Dates: start: 20110406

REACTIONS (4)
  - PYREXIA [None]
  - DIARRHOEA [None]
  - STOMATITIS [None]
  - BONE MARROW FAILURE [None]
